FAERS Safety Report 7397600-6 (Version None)
Quarter: 2011Q2

REPORT INFORMATION
  Report Type: 
  Country: None (occurrence: None)
  Receive Date: 20110406
  Receipt Date: 20110331
  Transmission Date: 20111010
  Serious: Yes (Other)
  Sender: FDA-Public Use
  Company Number: FR-MERCK-0711FRA00007

PATIENT
  Age: 68 Year
  Sex: Female

DRUGS (9)
  1. GLIMEPIRIDE [Concomitant]
     Indication: TYPE 2 DIABETES MELLITUS
     Route: 048
  2. QUINAPRIL HYDROCHLORIDE [Concomitant]
     Indication: HYPERTENSION
     Route: 048
  3. INDAPAMIDE [Concomitant]
     Indication: HYPERTENSION
     Route: 048
  4. TETRAZEPAM [Concomitant]
     Indication: MUSCLE CONTRACTURE
     Route: 048
  5. PIOGLITAZONE HYDROCHLORIDE [Suspect]
     Indication: TYPE 2 DIABETES MELLITUS
     Route: 048
     Dates: start: 20060201, end: 20071001
  6. ZOCOR [Suspect]
     Indication: DYSLIPIDAEMIA
     Route: 048
  7. BACLOFEN [Concomitant]
     Indication: SPASTIC PARAPLEGIA
     Route: 048
  8. METFORMIN HYDROCHLORIDE [Concomitant]
     Indication: TYPE 2 DIABETES MELLITUS
     Route: 048
  9. HEPTAMINOL ADENYLATE [Concomitant]
     Route: 048

REACTIONS (2)
  - FEMUR FRACTURE [None]
  - TIBIA FRACTURE [None]
